FAERS Safety Report 23128712 (Version 2)
Quarter: 2023Q4

REPORT INFORMATION
  Report Type: Spontaneous
  Country: CA (occurrence: CA)
  Receive Date: 20231031
  Receipt Date: 20231128
  Transmission Date: 20240109
  Serious: Yes (Other)
  Sender: FDA-Public Use
  Company Number: CA-OCTA-HAPL04623

PATIENT
  Age: 24 Year
  Sex: Female
  Weight: 54 kg

DRUGS (2)
  1. UNSPECIFIED INGREDIENT [Suspect]
     Active Substance: UNSPECIFIED INGREDIENT
     Indication: Immunodeficiency
     Route: 042
     Dates: start: 20230127, end: 20230127
  2. MIRTAZAPINE [Concomitant]
     Active Substance: MIRTAZAPINE
     Indication: Product used for unknown indication

REACTIONS (10)
  - Chest discomfort [Recovered/Resolved]
  - Chills [Recovered/Resolved]
  - Febrile nonhaemolytic transfusion reaction [Recovered/Resolved]
  - Fluid replacement [Recovered/Resolved]
  - Hypotension [Recovered/Resolved]
  - Hypoxia [Recovered/Resolved]
  - Muscle spasms [Recovered/Resolved]
  - Oxygen therapy [Recovered/Resolved]
  - Pain [Recovered/Resolved]
  - Pyrexia [Recovered/Resolved]

NARRATIVE: CASE EVENT DATE: 20230127
